FAERS Safety Report 23947717 (Version 1)
Quarter: 2024Q2

REPORT INFORMATION
  Report Type: Other
  Country: CA (occurrence: None)
  Receive Date: 20240606
  Receipt Date: 20240606
  Transmission Date: 20240715
  Serious: Yes (Hospitalization)
  Sender: FDA-Public Use
  Company Number: CA-ROCHE-3531802

PATIENT
  Sex: Male

DRUGS (8)
  1. ACTEMRA [Suspect]
     Active Substance: TOCILIZUMAB
     Indication: Giant cell arteritis
     Dosage: ON HOLD
     Route: 058
     Dates: start: 20231111
  2. ACTEMRA [Suspect]
     Active Substance: TOCILIZUMAB
     Indication: Polymyalgia rheumatica
  3. ALENDRONATE [Concomitant]
     Active Substance: ALENDRONATE SODIUM
  4. CALCIUM [Concomitant]
     Active Substance: CALCIUM
  5. OMEGA 3 [Concomitant]
     Active Substance: CAPSAICIN
  6. PANTOPRAZOLE MAGNESIUM [Concomitant]
     Active Substance: PANTOPRAZOLE MAGNESIUM
  7. PENTAMIDINE [Concomitant]
     Active Substance: PENTAMIDINE
  8. PREDNISONE [Concomitant]
     Active Substance: PREDNISONE

REACTIONS (13)
  - Delirium [Recovered/Resolved]
  - Pain [Unknown]
  - Pyrexia [Unknown]
  - Ill-defined disorder [Unknown]
  - Asthenia [Unknown]
  - Infection [Unknown]
  - Off label use [Unknown]
  - Off label use [Unknown]
  - Abdominal infection [Unknown]
  - Mobility decreased [Unknown]
  - Hypotension [Unknown]
  - Heart rate decreased [Unknown]
  - Heart rate increased [Unknown]

NARRATIVE: CASE EVENT DATE: 20240101
